FAERS Safety Report 8825601 (Version 1)
Quarter: 2012Q4

REPORT INFORMATION
  Report Type: 
  Country: US (occurrence: US)
  Receive Date: 20121004
  Receipt Date: 20121004
  Transmission Date: 20130627
  Serious: Yes (Other)
  Sender: FDA-Public Use
  Company Number: US-PFIZER INC-2012245066

PATIENT
  Age: 50 Year
  Sex: Female
  Weight: 49.89 kg

DRUGS (5)
  1. RELPAX [Suspect]
     Indication: MIGRAINE
     Dosage: 40 mg, as needed
     Route: 048
     Dates: start: 2012
  2. TOPAMAX [Suspect]
     Indication: MIGRAINE
     Dosage: 100 mg, 2x/day
  3. TOPAMAX [Suspect]
     Dosage: 125 mg, 2x/day
  4. TOPAMAX [Suspect]
     Dosage: 150 mg, 2x/day
  5. TOPAMAX [Suspect]
     Dosage: 125 mg, 2x/day

REACTIONS (6)
  - Muscle atrophy [Not Recovered/Not Resolved]
  - Myalgia [Unknown]
  - Muscular weakness [Unknown]
  - Dysstasia [Unknown]
  - Dizziness [Recovered/Resolved]
  - Drug intolerance [Unknown]
